FAERS Safety Report 18066657 (Version 2)
Quarter: 2021Q3

REPORT INFORMATION
  Report Type: Report from Study
  Country: ES (occurrence: ES)
  Receive Date: 20200724
  Receipt Date: 20210806
  Transmission Date: 20211014
  Serious: Yes (Other)
  Sender: FDA-Public Use
  Company Number: ES-MYLANLABS-2020M1066083

PATIENT
  Age: 70 Year
  Sex: Male
  Weight: 88 kg

DRUGS (5)
  1. INSULIN GLARGINE [Suspect]
     Active Substance: INSULIN GLARGINE
     Dosage: UNK
     Route: 058
     Dates: start: 2020
  2. FUROSEMIDE. [Suspect]
     Active Substance: FUROSEMIDE
     Indication: RENAL DISORDER
     Dosage: UNK
     Route: 048
  3. INSULIN GLARGINE [Suspect]
     Active Substance: INSULIN GLARGINE
     Indication: TYPE 2 DIABETES MELLITUS
     Dosage: UNK (DOSE INCREASED)
     Dates: start: 2020
  4. FUROSEMIDE. [Suspect]
     Active Substance: FUROSEMIDE
     Dosage: 1 DF, QD
     Route: 048
  5. INSULIN GLARGINE [Suspect]
     Active Substance: INSULIN GLARGINE
     Dosage: 38 IU
     Route: 058
     Dates: start: 20200115

REACTIONS (7)
  - Feeling abnormal [Unknown]
  - Hyperglycaemia [Unknown]
  - General physical health deterioration [Unknown]
  - Pollakiuria [Unknown]
  - Blood glucose increased [Unknown]
  - Hypoglycaemia [Unknown]
  - Blood creatine increased [Unknown]

NARRATIVE: CASE EVENT DATE: 2020
